APPROVED DRUG PRODUCT: CISATRACURIUM BESYLATE
Active Ingredient: CISATRACURIUM BESYLATE
Strength: EQ 2MG BASE/ML
Dosage Form/Route: INJECTABLE;INJECTION
Application: A215516 | Product #003 | TE Code: AP
Applicant: GLAND PHARMA LTD
Approved: Dec 14, 2022 | RLD: No | RS: No | Type: RX